FAERS Safety Report 5583141-5 (Version None)
Quarter: 2008Q1

REPORT INFORMATION
  Report Type: 
  Country: None (occurrence: None)
  Receive Date: 20080107
  Receipt Date: 20071218
  Transmission Date: 20080703
  Serious: Yes (Hospitalization)
  Sender: FDA-Public Use
  Company Number: US-ELI_LILLY_AND_COMPANY-US200712003378

PATIENT
  Sex: Male
  Weight: 68.027 kg

DRUGS (5)
  1. PEMETREXED [Suspect]
     Indication: NON-SMALL CELL LUNG CANCER
     Dosage: 500 MG/M2, OTHER
     Route: 042
     Dates: start: 20071108
  2. FOLIC ACID [Concomitant]
     Indication: PROPHYLAXIS
     Dates: start: 20071107
  3. VITAMIN B-12 [Concomitant]
     Indication: PROPHYLAXIS
     Dosage: UNK, UNK
     Dates: start: 20071107
  4. DEXAMETHASONE TAB [Concomitant]
     Indication: PROPHYLAXIS
     Dates: start: 20071107
  5. OXYCONTIN [Concomitant]
     Dosage: 60 MG, UNK

REACTIONS (1)
  - PAIN [None]
